FAERS Safety Report 7875226-5 (Version None)
Quarter: 2011Q4

REPORT INFORMATION
  Report Type: 
  Country: None (occurrence: None)
  Receive Date: 20111031
  Receipt Date: 20111025
  Transmission Date: 20120403
  Serious: Yes (Death)
  Sender: FDA-Public Use
  Company Number: JP-ASTELLAS-2011JP007609

PATIENT
  Age: 60 Year
  Sex: Male
  Weight: 39 kg

DRUGS (9)
  1. FUNGUARD [Suspect]
     Indication: BRONCHOPULMONARY ASPERGILLOSIS
     Dosage: 300 MG, UNKNOWN/D
     Route: 065
  2. PREDNISOLONE [Concomitant]
     Dosage: 2.5 MG, UNKNOWN/D
     Route: 065
  3. PREDNISOLONE [Concomitant]
     Dosage: 30 MG, UNKNOWN/D
     Route: 065
  4. PREDNISOLONE [Concomitant]
     Dosage: 15 MG, UNKNOWN/D
     Route: 065
  5. FUNGUARD [Suspect]
     Dosage: 150 MG, UNKNOWN/D
     Route: 065
  6. VORICONAZOLE [Concomitant]
     Dosage: 400 MG, UNKNOWN/D
     Route: 065
  7. AMPHOTERICIN B [Concomitant]
     Indication: BRONCHOPULMONARY ASPERGILLOSIS
     Route: 065
  8. PREDNISOLONE [Concomitant]
     Dosage: 30 MG, UNKNOWN/D
     Route: 065
  9. VORICONAZOLE [Concomitant]
     Indication: BRONCHOPULMONARY ASPERGILLOSIS
     Dosage: 200 MG, UNKNOWN/D
     Route: 065

REACTIONS (1)
  - DRUG INEFFECTIVE [None]
